FAERS Safety Report 5425157-5 (Version None)
Quarter: 2007Q3

REPORT INFORMATION
  Report Type: 
  Country: None (occurrence: None)
  Receive Date: 20070824
  Receipt Date: 20070816
  Transmission Date: 20080115
  Serious: Yes (Other)
  Sender: FDA-Public Use
  Company Number: US-ASTRAZENECA-2007UW19764

PATIENT
  Age: 53 Year
  Sex: Female
  Weight: 81.6 kg

DRUGS (3)
  1. PULMICORT FLEXHALER [Suspect]
     Indication: ASTHMA
     Route: 055
  2. ALBUTEROL [Concomitant]
  3. SEREVENT [Concomitant]

REACTIONS (4)
  - DYSPNOEA [None]
  - FUNGAL INFECTION [None]
  - LUNG DISORDER [None]
  - MOVEMENT DISORDER [None]
